FAERS Safety Report 13755332 (Version 1)
Quarter: 2017Q3

REPORT INFORMATION
  Report Type: Spontaneous
  Country: US (occurrence: US)
  Receive Date: 20170714
  Receipt Date: 20170714
  Transmission Date: 20171127
  Serious: No
  Sender: FDA-Public Use
  Company Number: US-PFIZER INC-2017299064

PATIENT
  Age: 40 Year
  Sex: Female

DRUGS (2)
  1. METHOTREXATE SODIUM. [Suspect]
     Active Substance: METHOTREXATE SODIUM
     Dosage: 0.8 ML, WEEKLY (EVERY WEEK)
     Dates: start: 20170510
  2. LYRICA [Suspect]
     Active Substance: PREGABALIN
     Indication: FIBROMYALGIA
     Dosage: 100 MG, 3X/DAY
     Route: 048

REACTIONS (13)
  - Photosensitivity reaction [Unknown]
  - Myofascial pain syndrome [Unknown]
  - Musculoskeletal stiffness [Unknown]
  - Dry eye [Unknown]
  - Paraesthesia [Unknown]
  - Rash [Unknown]
  - Dry mouth [Unknown]
  - Mouth ulceration [Unknown]
  - Pain [Unknown]
  - Pleuritic pain [Unknown]
  - Peripheral swelling [Unknown]
  - Neck pain [Unknown]
  - Tenderness [Unknown]
